FAERS Safety Report 4325637-X (Version None)
Quarter: 2004Q1

REPORT INFORMATION
  Report Type: 
  Country: None (occurrence: None)
  Receive Date: 20040324
  Receipt Date: 20040309
  Transmission Date: 20041129
  Serious: Yes (Disabling, Other)
  Sender: FDA-Public Use
  Company Number: USA040361329

PATIENT
  Age: 79 Year
  Sex: Male

DRUGS (2)
  1. HUMULIN L [Suspect]
     Indication: DIABETES MELLITUS
     Dosage: 50 U IN THE MORNING
     Dates: start: 19890101
  2. LENTE ILETIN II (PORK) [Suspect]
     Indication: DIABETES MELLITUS
     Dates: start: 19790101, end: 19890101

REACTIONS (4)
  - BLINDNESS [None]
  - DAWN PHENOMENON [None]
  - GLYCOSYLATED HAEMOGLOBIN INCREASED [None]
  - MACULAR DEGENERATION [None]
